FAERS Safety Report 13742377 (Version 2)
Quarter: 2017Q3

REPORT INFORMATION
  Report Type: Spontaneous
  Country: RU (occurrence: RU)
  Receive Date: 20170711
  Receipt Date: 20170819
  Transmission Date: 20171127
  Serious: Yes (Other)
  Sender: FDA-Public Use
  Company Number: RU-009507513-1707RUS000969

PATIENT
  Age: 74 Year
  Sex: Female

DRUGS (2)
  1. BETAMETHASONE VALERATE. [Suspect]
     Active Substance: BETAMETHASONE VALERATE
     Indication: ECZEMA
     Dosage: UNK
     Route: 061
  2. BETAMETHASONE DIPROPIONATE (+) CLOTRIMAZOLE (+) GENTAMICIN SULFATE [Suspect]
     Active Substance: BETAMETHASONE DIPROPIONATE\CLOTRIMAZOLE\GENTAMICIN SULFATE
     Indication: ECZEMA
     Dosage: 1 MG, BID

REACTIONS (9)
  - Drug ineffective for unapproved indication [Recovered/Resolved]
  - Rash generalised [Recovered/Resolved]
  - Pruritus [Recovered/Resolved]
  - Inflammation [Recovered/Resolved]
  - Product use in unapproved indication [Unknown]
  - Eczema [Recovered/Resolved]
  - Skin lesion [Unknown]
  - Wound secretion [Recovered/Resolved]
  - Rash [Recovered/Resolved]
